FAERS Safety Report 4928751-0 (Version None)
Quarter: 2006Q1

REPORT INFORMATION
  Report Type: 
  Country: None (occurrence: None)
  Receive Date: 20060301
  Receipt Date: 20060220
  Transmission Date: 20060701
  Serious: Yes (Hospitalization, Disabling, Other)
  Sender: FDA-Public Use
  Company Number: GB-JNJFOC-20060205101

PATIENT
  Age: 52 Year
  Sex: Male

DRUGS (9)
  1. HALDOL [Suspect]
     Dosage: REDUCED DOSE
     Route: 048
  2. HALDOL [Suspect]
     Indication: AGITATION
     Route: 048
  3. FLUOXETINE HCL [Concomitant]
  4. ASPIRIN [Concomitant]
  5. SIMVASTATIN [Concomitant]
  6. PROCYCLIDINE HYDROCHLORIDE 2MG TAB [Concomitant]
  7. VALPROATE SODIUM [Concomitant]
  8. HYOSCINE HBR HYT [Concomitant]
  9. TEMAZEPAM [Concomitant]

REACTIONS (1)
  - BRADYCARDIA [None]
